FAERS Safety Report 4870001-8 (Version None)
Quarter: 2005Q4

REPORT INFORMATION
  Report Type: 
  Country: None (occurrence: None)
  Receive Date: 20051223
  Receipt Date: 20051216
  Transmission Date: 20060501
  Serious: Yes (Hospitalization, Other)
  Sender: FDA-Public Use
  Company Number: 163-20785-05080167

PATIENT
  Age: 75 Year
  Sex: Female
  Weight: 45.1783 kg

DRUGS (15)
  1. THALOMID [Suspect]
     Indication: MULTIPLE MYELOMA
     Dosage: 200 MG, DAILY, ORAL
     Route: 048
     Dates: start: 20040601, end: 20050316
  2. AREDIA [Concomitant]
  3. METOPROLOL SUCCINATE [Concomitant]
  4. VERAPAMIL [Concomitant]
  5. COUMADIN [Concomitant]
  6. LEXAPRO [Concomitant]
  7. TOPROL-XL [Concomitant]
  8. PREVACID [Concomitant]
  9. SEREVENT DISKUS (SALMETEROL XINAFOATE) [Concomitant]
  10. PULMICORT [Concomitant]
  11. SINGULAIR [Concomitant]
  12. ZOCOR [Concomitant]
  13. TRAMADOL HCL [Concomitant]
  14. FOSAMAX [Concomitant]
  15. XANAX [Concomitant]

REACTIONS (16)
  - AORTIC VALVE INCOMPETENCE [None]
  - BLOOD PRESSURE INADEQUATELY CONTROLLED [None]
  - BLOOD PRESSURE INCREASED [None]
  - CEREBROVASCULAR ACCIDENT [None]
  - DEEP VEIN THROMBOSIS [None]
  - DELIRIUM [None]
  - HAEMOGLOBIN DECREASED [None]
  - HYPERCOAGULATION [None]
  - HYPONATRAEMIA [None]
  - INTERNATIONAL NORMALISED RATIO INCREASED [None]
  - INTRACARDIAC THROMBUS [None]
  - KYPHOSIS [None]
  - MITRAL VALVE INCOMPETENCE [None]
  - RHONCHI [None]
  - TRANSIENT ISCHAEMIC ATTACK [None]
  - TRICUSPID VALVE INCOMPETENCE [None]
